FAERS Safety Report 14799781 (Version 1)
Quarter: 2018Q2

REPORT INFORMATION
  Report Type: Spontaneous
  Country: US (occurrence: US)
  Receive Date: 20180424
  Receipt Date: 20180424
  Transmission Date: 20180711
  Serious: No
  Sender: FDA-Public Use
  Company Number: US-PERRIGO-17US003694

PATIENT
  Sex: Female

DRUGS (1)
  1. FAMOTIDINE. [Suspect]
     Active Substance: FAMOTIDINE
     Indication: HYPERCHLORHYDRIA
     Dosage: 10 MG, BID
     Route: 048
     Dates: start: 20170415, end: 20170428

REACTIONS (4)
  - Blood pressure decreased [Recovered/Resolved]
  - Heart rate decreased [Recovered/Resolved]
  - Headache [Recovered/Resolved]
  - Fatigue [Recovered/Resolved]

NARRATIVE: CASE EVENT DATE: 20170427
